FAERS Safety Report 18662583 (Version 1)
Quarter: 2020Q4

REPORT INFORMATION
  Report Type: Spontaneous
  Country: GB (occurrence: GB)
  Receive Date: 20201224
  Receipt Date: 20201224
  Transmission Date: 20210114
  Serious: Yes (Other)
  Sender: FDA-Public Use
  Company Number: GB-ADVANZ PHARMA-202012011113

PATIENT

DRUGS (10)
  1. METHOTREXATE. [Concomitant]
     Active Substance: METHOTREXATE
     Dosage: 15MG/M2 ON DAY +1
  2. THIOTEPA. [Concomitant]
     Active Substance: THIOTEPA
     Dosage: 5MG/M2 BD FOR 1 DAY (DAY-4)
  3. FLUDARABINE [Concomitant]
     Active Substance: FLUDARABINE PHOSPHATE
     Dosage: 30 MG/M2
  4. BUDESONIDE. [Suspect]
     Active Substance: BUDESONIDE
     Indication: GRAFT VERSUS HOST DISEASE
     Dosage: UNK
  5. PREDNISOLONE. [Suspect]
     Active Substance: PREDNISOLONE
     Indication: GRAFT VERSUS HOST DISEASE
     Dosage: UNK
     Route: 048
  6. CICLOSPORIN [Concomitant]
     Active Substance: CYCLOSPORINE
     Indication: IMMUNOSUPPRESSION
     Dosage: 1.5MG/KG BD FROM DAY-1 ONWARDS
  7. TACROLIMUS. [Suspect]
     Active Substance: TACROLIMUS
     Indication: IMMUNOSUPPRESSION
     Dosage: UNK
  8. METHOTREXATE. [Concomitant]
     Active Substance: METHOTREXATE
     Dosage: 10MG/M2 ON DAY +3, DAY +6 AND DAY +11
  9. ATG [Concomitant]
     Active Substance: LAPINE T-LYMPHOCYTE IMMUNE GLOBULIN
     Dosage: 2.5MG/KG FOR 3 DAYS (DAY-10 TO-8)
  10. TREOSULFAN [Concomitant]
     Active Substance: TREOSULFAN
     Dosage: 14G/M2 FOR 3 DAYS (DAY-6 TO-4)

REACTIONS (1)
  - Cytomegalovirus infection reactivation [Unknown]
